FAERS Safety Report 14989417 (Version 3)
Quarter: 2018Q4

REPORT INFORMATION
  Report Type: Report from Study
  Country: US (occurrence: US)
  Receive Date: 20180608
  Receipt Date: 20181105
  Transmission Date: 20190204
  Serious: Yes (Hospitalization)
  Sender: FDA-Public Use
  Company Number: US-BAUSCH-BL-2018-016381

PATIENT
  Age: 73 Year
  Sex: Male

DRUGS (3)
  1. XIFAXAN [Suspect]
     Active Substance: RIFAXIMIN
     Dosage: ONLY 1 TABLET OF HIS XIFAXAN BY MOUTH ONCE DAILY ^IN ORDER TO STRETCH OUT HIS SUPPLY^
     Route: 048
     Dates: start: 2018
  2. XIFAXAN [Suspect]
     Active Substance: RIFAXIMIN
     Indication: HEPATIC ENCEPHALOPATHY
     Dosage: PROBABLY MORE THAN A YEAR OR MAY BE TWO YEARS
     Route: 048
  3. XIFAXAN [Suspect]
     Active Substance: RIFAXIMIN
     Dosage: SOME TIME BEFORE 2017
     Route: 048

REACTIONS (8)
  - Hospitalisation [Recovered/Resolved]
  - Compression fracture [Unknown]
  - Osteomyelitis [Unknown]
  - Clavicle fracture [Unknown]
  - Humerus fracture [Unknown]
  - Product supply issue [Not Recovered/Not Resolved]
  - Intentional product use issue [Not Recovered/Not Resolved]
  - Spinal fracture [Unknown]

NARRATIVE: CASE EVENT DATE: 2017
